FAERS Safety Report 5338469-0 (Version None)
Quarter: 2007Q2

REPORT INFORMATION
  Report Type: 
  Country: None (occurrence: None)
  Receive Date: 20070530
  Receipt Date: 20070518
  Transmission Date: 20071010
  Serious: Yes (Hospitalization)
  Sender: FDA-Public Use
  Company Number: JP-ROCHE-499051

PATIENT
  Age: 80 Year
  Sex: Female

DRUGS (3)
  1. ROCEPHIN [Suspect]
     Indication: PYREXIA
     Route: 042
     Dates: start: 20070425, end: 20070425
  2. ROCEPHIN [Suspect]
     Route: 042
     Dates: start: 20070428, end: 20070501
  3. ROCEPHIN [Suspect]
     Route: 042
     Dates: start: 20070515, end: 20070515

REACTIONS (1)
  - TOXIC SKIN ERUPTION [None]
